FAERS Safety Report 4604082-3 (Version None)
Quarter: 2005Q1

REPORT INFORMATION
  Report Type: 
  Country: None (occurrence: None)
  Receive Date: 20050309
  Receipt Date: 20050309
  Transmission Date: 20050727
  Serious: Yes (Death)
  Sender: FDA-Public Use
  Company Number: None

PATIENT
  Age: 74 Year
  Sex: Female
  Weight: 66 kg

DRUGS (5)
  1. CAPECITABINE 150 MG ROCHE [Suspect]
     Indication: CHEMOTHERAPY
     Dosage: 150 MG BID ORAL
     Route: 048
     Dates: start: 20050203, end: 20050303
  2. CAPECITABINE 500 MG ROCHE [Suspect]
     Indication: CHEMOTHERAPY
     Dosage: 500 MG 3QAM, 2Q PM ORAL
     Route: 048
     Dates: start: 20050203, end: 20050303
  3. SIMVASTATIN [Concomitant]
  4. ACETAMINOPHEN AND CODEINE PHOSPHATE [Concomitant]
  5. ALBUTEROL/IPRATROPIUM [Concomitant]

REACTIONS (11)
  - AIR EMBOLISM [None]
  - ASCITES [None]
  - GASTROINTESTINAL ISCHAEMIA [None]
  - HAEMATEMESIS [None]
  - HAEMATOCHEZIA [None]
  - HYPOTENSION [None]
  - LOSS OF CONSCIOUSNESS [None]
  - MESENTERIC ATHEROSCLEROSIS [None]
  - PNEUMATOSIS CYSTOIDES INTESTINALIS [None]
  - RECTAL HAEMORRHAGE [None]
  - VASOSPASM [None]
